FAERS Safety Report 6518378-1 (Version None)
Quarter: 2009Q4

REPORT INFORMATION
  Report Type: 
  Country: None (occurrence: None)
  Receive Date: 20091224
  Receipt Date: 20091216
  Transmission Date: 20100525
  Serious: Yes (Life-Threatening)
  Sender: FDA-Public Use
  Company Number: DE-GENENTECH-293244

PATIENT
  Sex: Female
  Weight: 74 kg

DRUGS (6)
  1. RITUXIMAB [Suspect]
     Indication: NON-HODGKIN'S LYMPHOMA
     Dosage: 660 MG, Q4W
     Route: 042
     Dates: start: 20090727, end: 20091214
  2. BENDAMUSTINE [Suspect]
     Indication: NON-HODGKIN'S LYMPHOMA
     Dosage: 320 MG, Q4W
     Route: 042
     Dates: start: 20090724, end: 20091214
  3. ARCOXIA [Concomitant]
     Indication: DRUG USE FOR UNKNOWN INDICATION
     Dosage: UNK
     Dates: start: 20090918
  4. ARCOXIA [Concomitant]
     Dosage: UNK
     Dates: start: 20091019
  5. PARACETAMOL [Concomitant]
     Indication: DRUG USE FOR UNKNOWN INDICATION
     Dosage: UNK
     Dates: start: 20090930
  6. PARACETAMOL [Concomitant]
     Dosage: UNK
     Dates: start: 20091019

REACTIONS (2)
  - OSTEOARTHRITIS [None]
  - PNEUMOCYSTIS JIROVECI PNEUMONIA [None]
